FAERS Safety Report 6760434-7 (Version None)
Quarter: 2010Q2

REPORT INFORMATION
  Report Type: 
  Country: None (occurrence: None)
  Receive Date: 20100608
  Receipt Date: 20100526
  Transmission Date: 20101027
  Serious: Yes (Life-Threatening, Hospitalization, Other)
  Sender: FDA-Public Use
  Company Number: PHHY2008JP32372

PATIENT
  Sex: Female
  Weight: 45 kg

DRUGS (9)
  1. ICL670A ICL+DISTAB [Suspect]
     Indication: IRON OVERLOAD
     Dosage: 500 MG/DAY
     Route: 048
     Dates: start: 20080728, end: 20080817
  2. ICL670A ICL+DISTAB [Suspect]
     Dosage: 1000 MG/DAY
     Route: 048
     Dates: start: 20080818, end: 20081119
  3. OMEPRAL [Concomitant]
     Indication: PAROXYSMAL NOCTURNAL HAEMOGLOBINURIA
     Dosage: 20 MG
     Route: 048
     Dates: start: 20080728, end: 20081119
  4. PRIMOBOLAN [Concomitant]
     Indication: APLASTIC ANAEMIA
     Dosage: 10 MG
     Route: 048
     Dates: start: 20080728, end: 20081119
  5. MAALOX                                  /NET/ [Concomitant]
     Indication: PAROXYSMAL NOCTURNAL HAEMOGLOBINURIA
     Dosage: 3 DF
     Route: 048
     Dates: start: 20080728, end: 20081119
  6. PREDONINE [Concomitant]
     Indication: APLASTIC ANAEMIA
     Dosage: 10 MG
     Route: 048
     Dates: start: 20080928
  7. PREDONINE [Concomitant]
     Dosage: 5 MG
     Route: 048
  8. PREDONINE [Concomitant]
     Dosage: 5 MG
     Route: 048
  9. FOLIAMIN [Concomitant]
     Indication: APLASTIC ANAEMIA
     Dosage: 5 MG
     Route: 048
     Dates: start: 20080728, end: 20081119

REACTIONS (17)
  - ADENOCARCINOMA [None]
  - ALANINE AMINOTRANSFERASE INCREASED [None]
  - ASPARTATE AMINOTRANSFERASE INCREASED [None]
  - BLOOD CREATININE INCREASED [None]
  - BLOOD UREA INCREASED [None]
  - BODY TEMPERATURE INCREASED [None]
  - DECREASED APPETITE [None]
  - DUODENAL ULCER HAEMORRHAGE [None]
  - EROSIVE DUODENITIS [None]
  - ERYTHEMA [None]
  - GASTRITIS [None]
  - HAEMOGLOBIN DECREASED [None]
  - MYOSITIS [None]
  - PAIN IN EXTREMITY [None]
  - PLATELET COUNT DECREASED [None]
  - RASH GENERALISED [None]
  - WHITE BLOOD CELL COUNT INCREASED [None]
